FAERS Safety Report 19006245 (Version 1)
Quarter: 2021Q1

REPORT INFORMATION
  Report Type: Spontaneous
  Country: US (occurrence: US)
  Receive Date: 20210315
  Receipt Date: 20210315
  Transmission Date: 20210420
  Serious: Yes (Life-Threatening, Hospitalization)
  Sender: FDA-Public Use
  Company Number: US-LUPIN PHARMACEUTICALS INC.-2021-03050

PATIENT
  Age: 15 Year
  Sex: Female

DRUGS (20)
  1. DIPHENHYDRAMINE. [Suspect]
     Active Substance: DIPHENHYDRAMINE
     Indication: DYSPNOEA
  2. RACEPINEPHRINE [RACEPINEFRINE] [Suspect]
     Active Substance: RACEPINEPHRINE
     Indication: OBSTRUCTIVE AIRWAYS DISORDER
  3. DIPHENHYDRAMINE. [Suspect]
     Active Substance: DIPHENHYDRAMINE
     Indication: OBSTRUCTIVE AIRWAYS DISORDER
  4. DEXAMETHASONE. [Suspect]
     Active Substance: DEXAMETHASONE
     Indication: OBSTRUCTIVE AIRWAYS DISORDER
  5. RACEPINEPHRINE [RACEPINEFRINE] [Suspect]
     Active Substance: RACEPINEPHRINE
     Indication: DYSPNOEA
  6. LORAZEPAM. [Suspect]
     Active Substance: LORAZEPAM
     Indication: STRIDOR
     Dosage: UNK
     Route: 065
  7. DEXAMETHASONE. [Suspect]
     Active Substance: DEXAMETHASONE
     Indication: STRIDOR
     Dosage: UNK
     Route: 065
  8. CYCLOPHOSPHAMIDE. [Concomitant]
     Active Substance: CYCLOPHOSPHAMIDE
     Indication: SYSTEMIC LUPUS ERYTHEMATOSUS
     Dosage: UNK
     Route: 065
  9. ALBUTEROL SULFATE. [Suspect]
     Active Substance: ALBUTEROL SULFATE
     Indication: OBSTRUCTIVE AIRWAYS DISORDER
  10. DIPHENHYDRAMINE. [Suspect]
     Active Substance: DIPHENHYDRAMINE
     Indication: STRIDOR
     Dosage: UNK
     Route: 065
  11. RITUXIMAB. [Concomitant]
     Active Substance: RITUXIMAB
     Indication: SYSTEMIC LUPUS ERYTHEMATOSUS
     Dosage: UNK
     Route: 065
  12. ALBUTEROL SULFATE. [Suspect]
     Active Substance: ALBUTEROL SULFATE
     Indication: DYSPNOEA
  13. FUROSEMIDE. [Concomitant]
     Active Substance: FUROSEMIDE
     Indication: SYSTEMIC LUPUS ERYTHEMATOSUS
     Dosage: UNK
     Route: 065
  14. METHYLPREDNISOLONE. [Concomitant]
     Active Substance: METHYLPREDNISOLONE
     Indication: SYSTEMIC LUPUS ERYTHEMATOSUS
     Dosage: UNK, PULSED DOSE
     Route: 065
  15. ALBUTEROL SULFATE. [Suspect]
     Active Substance: ALBUTEROL SULFATE
     Indication: STRIDOR
     Dosage: UNK
     Route: 065
  16. DEXAMETHASONE. [Suspect]
     Active Substance: DEXAMETHASONE
     Indication: DYSPNOEA
  17. LORAZEPAM. [Suspect]
     Active Substance: LORAZEPAM
     Indication: DYSPNOEA
  18. LORAZEPAM. [Suspect]
     Active Substance: LORAZEPAM
     Indication: OBSTRUCTIVE AIRWAYS DISORDER
  19. RACEPINEPHRINE [RACEPINEFRINE] [Suspect]
     Active Substance: RACEPINEPHRINE
     Indication: STRIDOR
     Dosage: UNK
     Route: 065
  20. HYDRALAZINE [Concomitant]
     Active Substance: HYDRALAZINE HYDROCHLORIDE
     Indication: SYSTEMIC LUPUS ERYTHEMATOSUS
     Dosage: UNK
     Route: 065

REACTIONS (1)
  - Drug ineffective [Unknown]
